FAERS Safety Report 25368602 (Version 1)
Quarter: 2025Q2

REPORT INFORMATION
  Report Type: Spontaneous
  Country: FR (occurrence: FR)
  Receive Date: 20250528
  Receipt Date: 20250528
  Transmission Date: 20250716
  Serious: Yes (Hospitalization)
  Sender: ANI
  Company Number: FR-ANIPHARMA-2025-FR-000081

PATIENT
  Age: 63 Year
  Sex: Male
  Weight: 63 kg

DRUGS (11)
  1. CANDESARTAN CILEXETIL [Suspect]
     Active Substance: CANDESARTAN CILEXETIL
     Indication: Hypertension
     Route: 048
     Dates: start: 202504
  2. POLYETHYLENE GLYCOLS [Concomitant]
     Active Substance: POLYETHYLENE GLYCOLS
  3. LATANOPROST [Concomitant]
     Active Substance: LATANOPROST
  4. GANCICLOVIR [Suspect]
     Active Substance: GANCICLOVIR
     Route: 042
  5. FOSCARNET SODIUM [Suspect]
     Active Substance: FOSCARNET SODIUM
     Route: 050
     Dates: start: 20250418, end: 20250422
  6. HYDROCHLOROTHIAZIDE [Suspect]
     Active Substance: HYDROCHLOROTHIAZIDE
     Route: 048
  7. METFORMIN HYDROCHLORIDE [Suspect]
     Active Substance: METFORMIN HYDROCHLORIDE
     Route: 048
     Dates: start: 202504, end: 20250422
  8. ATOVAQUONE [Concomitant]
     Active Substance: ATOVAQUONE
  9. FOLIC ACID [Concomitant]
     Active Substance: FOLIC ACID
  10. ASPIRIN [Concomitant]
     Active Substance: ASPIRIN
  11. AMLODIPINE [Concomitant]
     Active Substance: AMLODIPINE BESYLATE

REACTIONS (5)
  - Acute kidney injury [Recovering/Resolving]
  - Normocytic anaemia [Recovering/Resolving]
  - Lymphopenia [Recovering/Resolving]
  - Hypocalcaemia [Unknown]
  - Hypomagnesaemia [Unknown]
